FAERS Safety Report 17142269 (Version 1)
Quarter: 2019Q4

REPORT INFORMATION
  Report Type: Spontaneous
  Country: DE (occurrence: DE)
  Receive Date: 20191211
  Receipt Date: 20191211
  Transmission Date: 20200122
  Serious: Yes (Other)
  Sender: FDA-Public Use
  Company Number: DE-BAUSCH-BL-2019-064441

PATIENT
  Age: 49 Year
  Sex: Female
  Weight: 87 kg

DRUGS (16)
  1. CYCLOPHOSPHAMIDE. [Suspect]
     Active Substance: CYCLOPHOSPHAMIDE
     Dosage: FURTHER LINES, 1 CYCLE
     Route: 065
     Dates: start: 20191031, end: 20191112
  2. CYTOSINE ARABINOSIDE [Suspect]
     Active Substance: CYTARABINE
     Indication: DIFFUSE LARGE B-CELL LYMPHOMA
     Dosage: FIRST LINE, 6 CYCLES
     Route: 065
     Dates: start: 20180124, end: 20190219
  3. METHOTREXATE. [Suspect]
     Active Substance: METHOTREXATE
     Route: 065
  4. ETOPOSIDE. [Suspect]
     Active Substance: ETOPOSIDE
     Indication: DIFFUSE LARGE B-CELL LYMPHOMA
     Dosage: FIRST LINE, 6 CYCLES
     Route: 065
     Dates: start: 20180124, end: 20190219
  5. VINCRISTINE [Suspect]
     Active Substance: VINCRISTINE
     Indication: DIFFUSE LARGE B-CELL LYMPHOMA
     Dosage: FURTHER LINES, 1 CYCLE
     Route: 065
     Dates: start: 20191031, end: 20191112
  6. CISPLATIN. [Suspect]
     Active Substance: CISPLATIN
     Indication: DIFFUSE LARGE B-CELL LYMPHOMA
     Dosage: SECOND LINE, 3 CYCLES
     Route: 065
     Dates: start: 20190823, end: 20191006
  7. DEXAMETHASONE. [Suspect]
     Active Substance: DEXAMETHASONE
     Indication: DIFFUSE LARGE B-CELL LYMPHOMA
     Dosage: FIRST LINE, 6 CYCLES
     Route: 065
     Dates: start: 20180124, end: 20190219
  8. MABTHERA [Suspect]
     Active Substance: RITUXIMAB
     Indication: DIFFUSE LARGE B-CELL LYMPHOMA
     Dosage: SECOND LINE, 3 CYCLES
     Route: 065
  9. CYTOSINE ARABINOSIDE [Suspect]
     Active Substance: CYTARABINE
     Dosage: SECOND LINE, 3 CYCLES
     Route: 065
     Dates: start: 20190823, end: 20191006
  10. IFOSFAMIDE. [Suspect]
     Active Substance: IFOSFAMIDE
     Indication: DIFFUSE LARGE B-CELL LYMPHOMA
     Dosage: FIRST LINE, 6 CYCLES
     Route: 065
     Dates: start: 20180124, end: 20190219
  11. ETOPOSIDE. [Suspect]
     Active Substance: ETOPOSIDE
     Dosage: FURTHER LINES, 1 CYCLE
     Route: 065
     Dates: start: 20191031, end: 20191112
  12. PREDNISONE. [Suspect]
     Active Substance: PREDNISONE
     Indication: DIFFUSE LARGE B-CELL LYMPHOMA
     Dosage: FURTHER LINES, 1 CYCLE
     Route: 065
     Dates: start: 20191031, end: 20191112
  13. METHOTREXATE. [Suspect]
     Active Substance: METHOTREXATE
     Indication: DIFFUSE LARGE B-CELL LYMPHOMA
     Dosage: FIRST LINE, 6 CYCLES
     Route: 065
     Dates: start: 20180124, end: 20190219
  14. DOXORUBICIN [Suspect]
     Active Substance: DOXORUBICIN
     Indication: DIFFUSE LARGE B-CELL LYMPHOMA
     Dosage: FURTHER LINES, 1 CYCLE
     Route: 065
     Dates: start: 20191031, end: 20191112
  15. CYCLOPHOSPHAMIDE. [Suspect]
     Active Substance: CYCLOPHOSPHAMIDE
     Indication: DIFFUSE LARGE B-CELL LYMPHOMA
     Dosage: FIRST LINE, 6 CYCLES
     Route: 065
     Dates: start: 20180124, end: 20190219
  16. DEXAMETHASONE. [Suspect]
     Active Substance: DEXAMETHASONE
     Dosage: SECOND LINE, 3 CYCLES
     Route: 065
     Dates: start: 20190823, end: 20191006

REACTIONS (6)
  - White blood cell count decreased [Unknown]
  - Neutrophil count decreased [Unknown]
  - Hepatic lesion [Unknown]
  - Haemoglobin decreased [Unknown]
  - Vascular compression [Unknown]
  - Platelet count decreased [Unknown]

NARRATIVE: CASE EVENT DATE: 20191112
